FAERS Safety Report 9832034 (Version 1)
Quarter: 2014Q1

REPORT INFORMATION
  Report Type: Spontaneous
  Country: US (occurrence: US)
  Receive Date: 20140121
  Receipt Date: 20140121
  Transmission Date: 20141002
  Serious: No
  Sender: FDA-Public Use
  Company Number: US-009507513-1401USA004753

PATIENT
  Sex: Female

DRUGS (5)
  1. DULERA [Suspect]
     Indication: HYPERSENSITIVITY
  2. DULERA [Suspect]
     Indication: ASTHMA EXERCISE INDUCED
  3. ALBUTEROL [Concomitant]
  4. SINGULAIR [Concomitant]
  5. FEXOFENADINE HYDROCHLORIDE [Concomitant]

REACTIONS (3)
  - Dyspnoea [Recovering/Resolving]
  - Drug dose omission [Unknown]
  - Product quality issue [Unknown]
